FAERS Safety Report 12645256 (Version 1)
Quarter: 2016Q3

REPORT INFORMATION
  Report Type: Not Available
  Country: TW (occurrence: TW)
  Receive Date: 20160811
  Receipt Date: 20160811
  Transmission Date: 20161109
  Serious: Yes (Hospitalization)
  Sender: FDA-Public Use
  Company Number: TW-ANIPHARMA-2016-TW-000003

PATIENT
  Age: 76 Year
  Sex: Female

DRUGS (1)
  1. VALPROIC ACID (NON-SPECIFIC) [Suspect]
     Active Substance: VALPROIC ACID
     Dosage: 500 MG DAILY
     Route: 065

REACTIONS (4)
  - Asthenia [Recovered/Resolved]
  - Electrocardiogram T wave peaked [Recovered/Resolved]
  - Hyperkalaemia [Recovered/Resolved]
  - Hyponatraemia [Recovered/Resolved]
